FAERS Safety Report 10711644 (Version 2)
Quarter: 2017Q3

REPORT INFORMATION
  Report Type: Spontaneous
  Country: US (occurrence: US)
  Receive Date: 20150114
  Receipt Date: 20170705
  Transmission Date: 20171127
  Serious: Yes (Death)
  Sender: FDA-Public Use
  Company Number: US-PFIZER INC-2015008859

PATIENT
  Age: 26 Year
  Sex: Male

DRUGS (7)
  1. CLONAZEPAM. [Suspect]
     Active Substance: CLONAZEPAM
     Dosage: UNK
     Dates: start: 2013
  2. LIDOCAINE HCL [Suspect]
     Active Substance: LIDOCAINE HYDROCHLORIDE
     Dosage: UNK
     Dates: start: 2013
  3. DILTIAZEM HCL [Suspect]
     Active Substance: DILTIAZEM HYDROCHLORIDE
     Dosage: UNK
     Dates: start: 2013
  4. CODEINE [Suspect]
     Active Substance: CODEINE
     Dosage: UNK
     Dates: start: 2013
  5. COCAINE [Suspect]
     Active Substance: COCAINE
     Dosage: UNK
     Dates: start: 2013
  6. HEROIN [Suspect]
     Active Substance: DIAMORPHINE
     Dosage: UNK
     Dates: start: 2013
  7. QUININE [Suspect]
     Active Substance: QUININE
     Dosage: UNK
     Dates: start: 2013

REACTIONS (2)
  - Toxicity to various agents [Fatal]
  - Drug abuse [Fatal]

NARRATIVE: CASE EVENT DATE: 2013
